FAERS Safety Report 7644107-4 (Version None)
Quarter: 2011Q3

REPORT INFORMATION
  Report Type: 
  Country: None (occurrence: None)
  Receive Date: 20110729
  Receipt Date: 20110727
  Transmission Date: 20111222
  Serious: Yes (Hospitalization)
  Sender: FDA-Public Use
  Company Number: US-SANOFI-AVENTIS-2011SA048287

PATIENT
  Age: 35 Year
  Sex: Female

DRUGS (3)
  1. AMBIEN CR [Suspect]
     Indication: INSOMNIA
     Route: 048
     Dates: start: 20110101
  2. KLONOPIN [Concomitant]
     Indication: DEPRESSION
  3. KLONOPIN [Concomitant]
     Indication: INSOMNIA

REACTIONS (2)
  - LOWER LIMB FRACTURE [None]
  - THROMBOSIS [None]
